FAERS Safety Report 4619022-0 (Version None)
Quarter: 2005Q1

REPORT INFORMATION
  Report Type: 
  Country: None (occurrence: None)
  Receive Date: 20050317
  Receipt Date: 20050317
  Transmission Date: 20050727
  Serious: Yes (Life-Threatening, Other)
  Sender: FDA-Public Use
  Company Number: None

PATIENT
  Sex: Female
  Weight: 15 kg

DRUGS (10)
  1. CHILDREN'S MOTRIN [Suspect]
     Indication: INFLAMMATION
     Dosage: 5ML    2X    ORAL
     Route: 048
     Dates: start: 20040926, end: 20040927
  2. CHILDREN'S MOTRIN [Suspect]
     Indication: LOWER LIMB FRACTURE
     Dosage: 5ML    2X    ORAL
     Route: 048
     Dates: start: 20040926, end: 20040927
  3. CHILDREN'S MOTRIN [Suspect]
     Indication: PAIN
     Dosage: 5ML    2X    ORAL
     Route: 048
     Dates: start: 20040926, end: 20040927
  4. CARNITOR [Concomitant]
  5. REGLAN [Concomitant]
  6. ZYRTEC [Concomitant]
  7. SINGULAIR [Concomitant]
  8. PREVACID [Concomitant]
  9. PULMICORT [Concomitant]
  10. NURTIPORT [Concomitant]

REACTIONS (3)
  - LETHARGY [None]
  - URINE KETONE BODY PRESENT [None]
  - VOMITING [None]
